FAERS Safety Report 7152876-5 (Version None)
Quarter: 2010Q4

REPORT INFORMATION
  Report Type: 
  Country: None (occurrence: None)
  Receive Date: 20101213
  Receipt Date: 20101210
  Transmission Date: 20110411
  Serious: Yes (Death, Hospitalization)
  Sender: FDA-Public Use
  Company Number: PHHY2010ES83803

PATIENT
  Age: 87 Year
  Sex: Female

DRUGS (2)
  1. SANDIMMUNE [Suspect]
     Indication: ERYTHRODERMIC PSORIASIS
     Dosage: 100 MG DAILY
     Route: 048
     Dates: start: 20100719, end: 20100721
  2. METHOTREXATE [Suspect]
     Indication: ERYTHRODERMIC PSORIASIS
     Dosage: 7.5MG WEEKLY
     Route: 048
     Dates: start: 20100708, end: 20100719

REACTIONS (1)
  - PANCYTOPENIA [None]
